FAERS Safety Report 5040405-1 (Version None)
Quarter: 2006Q2

REPORT INFORMATION
  Report Type: 
  Country: None (occurrence: None)
  Receive Date: 20060630
  Receipt Date: 20050215
  Transmission Date: 20061013
  Serious: Yes (Other)
  Sender: FDA-Public Use
  Company Number: FR-GLAXOSMITHKLINE-B0371956A

PATIENT
  Age: 37 Year
  Sex: Female

DRUGS (3)
  1. SERETIDE [Suspect]
     Indication: ASTHMA
     Dosage: 1PUFF TWICE PER DAY
     Route: 055
     Dates: start: 20040101, end: 20050101
  2. SOLUPRED [Suspect]
     Indication: ASTHMA
     Dosage: 40MG PER DAY
     Route: 048
     Dates: start: 20040101, end: 20040101
  3. RITONAVIR [Suspect]
     Indication: HIV INFECTION
     Route: 048

REACTIONS (5)
  - ADRENAL INSUFFICIENCY [None]
  - BLOOD CORTISOL DECREASED [None]
  - DRUG INTERACTION [None]
  - HYPERCORTICOIDISM [None]
  - HYPERPHAGIA [None]
